FAERS Safety Report 5887782 (Version 7)
Quarter: 2013Q4

REPORT INFORMATION
  Report Type: Report from Study
  Country: AU (occurrence: AU)
  Receive Date: 20050929
  Receipt Date: 20131226
  Transmission Date: 20140711
  Serious: Yes (Hospitalization, Other)
  Sender: FDA-Public Use
  Company Number: PHNR2005AU01434

PATIENT
  Age: 26 Year
  Sex: Male

DRUGS (2)
  1. CLOZARIL [Suspect]
     Indication: SCHIZOPHRENIA
     Dosage: 0 TO 200 MG /DAY
     Dates: start: 20050816, end: 20050907
  2. VALPROATE SODIUM [Concomitant]
     Dosage: UNK

REACTIONS (18)
  - Pericardial effusion [Recovered/Resolved]
  - Left ventricular dysfunction [Recovered/Resolved]
  - Pleural effusion [Unknown]
  - Mitral valve disease [Unknown]
  - Tricuspid valve incompetence [Unknown]
  - Pulmonary valve incompetence [Unknown]
  - Myocarditis [Recovered/Resolved]
  - Blood creatine phosphokinase increased [Unknown]
  - Troponin increased [Recovered/Resolved]
  - Influenza like illness [Unknown]
  - Respiratory tract infection viral [Unknown]
  - Rhinorrhoea [Unknown]
  - Cough [Not Recovered/Not Resolved]
  - Pyrexia [Unknown]
  - C-reactive protein increased [Unknown]
  - Viral infection [Recovered/Resolved]
  - Malaise [Unknown]
  - Dyspnoea [Unknown]
